FAERS Safety Report 15676271 (Version 3)
Quarter: 2019Q1

REPORT INFORMATION
  Report Type: Spontaneous
  Country: FI (occurrence: FI)
  Receive Date: 20181130
  Receipt Date: 20190104
  Transmission Date: 20190417
  Serious: Yes (Hospitalization, Other)
  Sender: FDA-Public Use
  Company Number: PHHY2018FI165921

PATIENT
  Age: 52 Year
  Sex: Female

DRUGS (7)
  1. HYDROCHLOROTHIAZIDE. [Suspect]
     Active Substance: HYDROCHLOROTHIAZIDE
     Indication: BLOOD PRESSURE INCREASED
     Dosage: 50 MG, QD
     Route: 065
  2. AMILORIDE [Concomitant]
     Active Substance: AMILORIDE
     Indication: PRODUCT USED FOR UNKNOWN INDICATION
     Dosage: 5 MG, QD
     Route: 065
  3. VALPROIC ACID. [Concomitant]
     Active Substance: VALPROIC ACID
     Indication: PRODUCT USED FOR UNKNOWN INDICATION
     Route: 065
  4. LEVOTHYROXINE. [Concomitant]
     Active Substance: LEVOTHYROXINE
     Indication: PRODUCT USED FOR UNKNOWN INDICATION
     Route: 065
  5. OLMESARTAN [Concomitant]
     Active Substance: OLMESARTAN
     Indication: PRODUCT USED FOR UNKNOWN INDICATION
     Route: 065
  6. CITALOPRAM [Concomitant]
     Active Substance: CITALOPRAM HYDROBROMIDE
     Indication: PRODUCT USED FOR UNKNOWN INDICATION
     Route: 065
  7. LITHIUM. [Interacting]
     Active Substance: LITHIUM
     Indication: BIPOLAR DISORDER
     Route: 065

REACTIONS (19)
  - Musculoskeletal stiffness [Unknown]
  - Medication error [Unknown]
  - Electrocardiogram abnormal [Unknown]
  - Speech disorder [Unknown]
  - Balance disorder [Unknown]
  - General physical health deterioration [Unknown]
  - Lip dry [Unknown]
  - Blood sodium increased [Unknown]
  - Toxicity to various agents [Recovered/Resolved]
  - Somnolence [Unknown]
  - Hypothyroidism [Not Recovered/Not Resolved]
  - Drug interaction [Recovered/Resolved]
  - Memory impairment [Unknown]
  - Decreased appetite [Unknown]
  - Blood creatinine increased [Unknown]
  - Blood pressure increased [Recovered/Resolved]
  - Movement disorder [Unknown]
  - Peripheral coldness [Unknown]
  - White blood cell count increased [Unknown]

NARRATIVE: CASE EVENT DATE: 20090917
